FAERS Safety Report 23272649 (Version 3)
Quarter: 2023Q4

REPORT INFORMATION
  Report Type: Report from Study
  Country: KR (occurrence: KR)
  Receive Date: 20231207
  Receipt Date: 20231220
  Transmission Date: 20240109
  Serious: Yes (Death, Life-Threatening, Hospitalization)
  Sender: FDA-Public Use
  Company Number: KR-MYLANLABS-2023M1129923

PATIENT
  Age: 63 Year
  Weight: 73.5 kg

DRUGS (20)
  1. LATANOPROST\TIMOLOL MALEATE [Suspect]
     Active Substance: LATANOPROST\TIMOLOL MALEATE
     Indication: Glaucoma
     Dosage: UNK
     Route: 065
  2. ROSUVASTATIN CALCIUM [Suspect]
     Active Substance: ROSUVASTATIN CALCIUM
     Indication: Hyperlipidaemia
     Dosage: 1 DOSAGE FORM
     Route: 065
  3. ACETAMINOPHEN\TRAMADOL [Suspect]
     Active Substance: ACETAMINOPHEN\TRAMADOL
     Indication: Myalgia
     Dosage: 2 DOSAGE FORM
     Route: 065
  4. PREGABALIN [Suspect]
     Active Substance: PREGABALIN
     Indication: Peripheral sensory neuropathy
     Dosage: 1 DOSAGE FORM
     Route: 065
  5. EBASTINE [Suspect]
     Active Substance: EBASTINE
     Indication: Rhinorrhoea
     Dosage: 1 DOSAGE FORM
     Route: 065
  6. MOSAPRIDE [Suspect]
     Active Substance: MOSAPRIDE
     Indication: Prophylaxis
     Dosage: 5.29 MILLIGRAM
     Route: 065
  7. TRASTUZUMAB [Suspect]
     Active Substance: TRASTUZUMAB
     Indication: Salivary gland cancer
     Dosage: UNK, 6 MILLIGRAMS PER KILOGRAM
     Route: 065
  8. TRASTUZUMAB [Suspect]
     Active Substance: TRASTUZUMAB
     Dosage: UNK, 6 MILLIGRAMS PER KILOGRAM
     Route: 065
  9. DOCETAXEL [Suspect]
     Active Substance: DOCETAXEL\DOCETAXEL ANHYDROUS
     Indication: Salivary gland cancer
     Dosage: UNK
     Route: 065
  10. DOCETAXEL [Suspect]
     Active Substance: DOCETAXEL\DOCETAXEL ANHYDROUS
     Dosage: UNK
     Route: 065
  11. DOCETAXEL [Suspect]
     Active Substance: DOCETAXEL\DOCETAXEL ANHYDROUS
     Dosage: 60 MILLIGRAM/SQ. METER
     Route: 065
  12. DOCETAXEL [Suspect]
     Active Substance: DOCETAXEL\DOCETAXEL ANHYDROUS
     Dosage: 60 MILLIGRAM/SQ. METER
     Route: 065
  13. BRIMONIDINE TARTRATE [Suspect]
     Active Substance: BRIMONIDINE TARTRATE
     Indication: Glaucoma
     Dosage: UNK
     Route: 065
  14. CIPROFLOXACIN HYDROCHLORIDE [Suspect]
     Active Substance: CIPROFLOXACIN HYDROCHLORIDE
     Indication: Antibiotic prophylaxis
     Dosage: 2 DOSAGE FORM
     Route: 065
  15. FUROSEMIDE [Suspect]
     Active Substance: FUROSEMIDE
     Indication: Oedema
     Dosage: 1 DOSAGE FORM
     Route: 065
  16. DESONIDE [Suspect]
     Active Substance: DESONIDE
     Indication: Pruritus
     Dosage: UNK
     Route: 065
  17. MUPIROCIN [Suspect]
     Active Substance: MUPIROCIN
     Indication: Rhinorrhoea
     Dosage: UNK
     Route: 065
  18. DULOXETINE HYDROCHLORIDE [Suspect]
     Active Substance: DULOXETINE HYDROCHLORIDE
     Indication: Peripheral sensory neuropathy
     Dosage: 1 DOSAGE FORM
     Route: 065
  19. PROBIOTICS NOS [Suspect]
     Active Substance: PROBIOTICS NOS
     Indication: Prophylaxis
     Dosage: 250 MILLIGRAM
     Route: 065
  20. ESOMEPRAZOLE MAGNESIUM [Suspect]
     Active Substance: ESOMEPRAZOLE MAGNESIUM
     Indication: Prophylaxis
     Dosage: 20 MILLIGRAM
     Route: 065

REACTIONS (7)
  - Heat stroke [Fatal]
  - Rib fracture [Not Recovered/Not Resolved]
  - Fall [Not Recovered/Not Resolved]
  - Dizziness [Not Recovered/Not Resolved]
  - Stomatitis [Recovering/Resolving]
  - Vertigo [Recovered/Resolved]
  - Off label use [Unknown]

NARRATIVE: CASE EVENT DATE: 20201022
